FAERS Safety Report 6393609-X (Version None)
Quarter: 2009Q4

REPORT INFORMATION
  Report Type: 
  Country: None (occurrence: None)
  Receive Date: 20091008
  Receipt Date: 20091002
  Transmission Date: 20100525
  Serious: Yes (Death)
  Sender: FDA-Public Use
  Company Number: BE-NAPPMUNDI-GBR-2009-0005639

PATIENT
  Sex: Male

DRUGS (4)
  1. OXYCONTIN [Suspect]
     Indication: BACK PAIN
     Dosage: 5 MG, BID
     Dates: start: 20090919, end: 20090929
  2. DIAZEPAM [Concomitant]
     Indication: MYALGIA
     Dosage: 20 MG, UNK
     Route: 048
  3. PROPRANOLOL [Concomitant]
     Indication: TREMOR
     Dosage: 80 MG, UNK
     Route: 048
  4. PROTHIADEN                         /00160401/ [Concomitant]
     Indication: DEPRESSION
     Dosage: 75 MG, UNK
     Route: 048

REACTIONS (1)
  - ARRHYTHMIA [None]
